FAERS Safety Report 16240920 (Version 1)
Quarter: 2019Q2

REPORT INFORMATION
  Report Type: Other
  Country: ES (occurrence: ES)
  Receive Date: 20190425
  Receipt Date: 20190425
  Transmission Date: 20190711
  Serious: Yes (Other)
  Sender: FDA-Public Use
  Company Number: ES-ALSI-201900182

PATIENT
  Age: 32 Year
  Sex: Male

DRUGS (1)
  1. NITROGEN. [Suspect]
     Active Substance: NITROGEN
     Indication: CRYOTHERAPY
     Route: 003

REACTIONS (1)
  - Pyogenic granuloma [Recovered/Resolved]
